FAERS Safety Report 7626232-7 (Version None)
Quarter: 2011Q3

REPORT INFORMATION
  Report Type: 
  Country: None (occurrence: None)
  Receive Date: 20110721
  Receipt Date: 20110708
  Transmission Date: 20111222
  Serious: Yes (Other)
  Sender: FDA-Public Use
  Company Number: PHHY2011DE62501

PATIENT
  Sex: Female
  Weight: 43 kg

DRUGS (6)
  1. PANTOPRAZOLE [Concomitant]
  2. CLOZAPINE [Suspect]
     Indication: SCHIZOPHRENIA, PARANOID TYPE
     Dosage: 200 MG, TID
     Dates: end: 20110101
  3. TRUXAL [Concomitant]
  4. MOVIPREP [Concomitant]
  5. ZYPREXA [Suspect]
     Dosage: 30 MG, QD
  6. TAVOR (FLUCONAZOLE) [Concomitant]
     Dosage: 1 DF, QD

REACTIONS (6)
  - ASPIRATION [None]
  - ILEUS PARALYTIC [None]
  - HAEMOGLOBIN ABNORMAL [None]
  - PSYCHIATRIC DECOMPENSATION [None]
  - DYSPEPSIA [None]
  - GENERAL PHYSICAL HEALTH DETERIORATION [None]
